FAERS Safety Report 6232784-4 (Version None)
Quarter: 2009Q2

REPORT INFORMATION
  Report Type: 
  Country: None (occurrence: None)
  Receive Date: 20090612
  Receipt Date: 20090612
  Transmission Date: 20091009
  Serious: Yes (Hospitalization)
  Sender: FDA-Public Use
  Company Number: None

PATIENT
  Age: 85 Year
  Sex: Male
  Weight: 50 kg

DRUGS (4)
  1. ZOCOR [Suspect]
     Indication: HYPERCHOLESTEROLAEMIA
     Dosage: 20 MG QPM PO
     Route: 048
  2. GEMFIBROZIL [Suspect]
     Dosage: 600 MG BID INJ
  3. DILTIAZEM CD [Concomitant]
  4. OMEPRAZOLE [Concomitant]

REACTIONS (1)
  - RHABDOMYOLYSIS [None]
